FAERS Safety Report 10248691 (Version 1)
Quarter: 2014Q2

REPORT INFORMATION
  Report Type: Spontaneous
  Country: DE (occurrence: None)
  Receive Date: 20140618
  Receipt Date: 20140618
  Transmission Date: 20141212
  Serious: Yes (Hospitalization, Other)
  Sender: FDA-Public Use
  Company Number: 2014-19737

PATIENT
  Age: 70 Year
  Sex: Male
  Weight: 80 kg

DRUGS (1)
  1. EYLEA [Suspect]
     Indication: AGE-RELATED MACULAR DEGENERATION
     Route: 031
     Dates: start: 20131015, end: 20131210

REACTIONS (9)
  - Cerebrovascular accident [None]
  - Musculoskeletal pain [None]
  - Neck pain [None]
  - Meningism [None]
  - Cervicobrachial syndrome [None]
  - Dizziness [None]
  - Cerebellar haemorrhage [None]
  - Blood pressure increased [None]
  - Vomiting [None]
